FAERS Safety Report 16133682 (Version 1)
Quarter: 2019Q1

REPORT INFORMATION
  Report Type: Spontaneous
  Country: US (occurrence: US)
  Receive Date: 20190329
  Receipt Date: 20190329
  Transmission Date: 20190418
  Serious: Yes (Hospitalization, Other)
  Sender: FDA-Public Use
  Company Number: US-TERSERA THERAPEUTICS LLC-2019TRS000281

PATIENT

DRUGS (3)
  1. BACLOFEN. [Suspect]
     Active Substance: BACLOFEN
     Indication: PRODUCT USED FOR UNKNOWN INDICATION
     Dosage: 17.5 MCG, QD
     Route: 037
  2. PRIALT [Suspect]
     Active Substance: ZICONOTIDE ACETATE
     Indication: PAIN
  3. PRIALT [Suspect]
     Active Substance: ZICONOTIDE ACETATE
     Indication: PAIN
     Dosage: 1.75 MCG, QD (CONCENTRATION 10 MCG/ML)
     Route: 037

REACTIONS (4)
  - Lung neoplasm malignant [Unknown]
  - Nicotine dependence [Unknown]
  - Off label use [Unknown]
  - Hernia [Unknown]

NARRATIVE: CASE EVENT DATE: 2016
